FAERS Safety Report 10170181 (Version 1)
Quarter: 2014Q2

REPORT INFORMATION
  Report Type: Spontaneous
  Country: US (occurrence: US)
  Receive Date: 20140513
  Receipt Date: 20140513
  Transmission Date: 20141212
  Serious: Yes (Death, Other)
  Sender: FDA-Public Use
  Company Number: US-WATSON-2014-09839

PATIENT
  Age: 29 Year
  Sex: Male
  Weight: 102 kg

DRUGS (4)
  1. METHYLPHENIDATE HYDROCHLORIDE (WATSON LABORATORIES) [Suspect]
     Indication: ATTENTION DEFICIT/HYPERACTIVITY DISORDER
     Dosage: 18 MG/DAY, INCREASED TO 36 MG/DAY 1 WEEK LATER
     Route: 065
     Dates: start: 2000, end: 201002
  2. ATOMOXETINE [Suspect]
     Indication: ATTENTION DEFICIT/HYPERACTIVITY DISORDER
     Dosage: UNK
     Route: 065
  3. ADDERALL [Suspect]
     Indication: ATTENTION DEFICIT/HYPERACTIVITY DISORDER
     Dosage: 30 MG IN THE MORNING AND 25 MG IN THE EVENING
     Route: 065
     Dates: start: 200906
  4. PROPANOLOL                         /00030001/ [Concomitant]
     Indication: MIGRAINE
     Dosage: UNKNOWN
     Route: 065
     Dates: start: 2010

REACTIONS (9)
  - Myocardial infarction [Fatal]
  - Cardiac arrest [Fatal]
  - Sinus tachycardia [Fatal]
  - Coronary artery occlusion [Fatal]
  - Syncope [Unknown]
  - Pulseless electrical activity [None]
  - Pneumothorax [None]
  - Procedural complication [None]
  - Myalgia [None]
